FAERS Safety Report 24736212 (Version 1)
Quarter: 2024Q4

REPORT INFORMATION
  Report Type: Spontaneous
  Country: NL (occurrence: NL)
  Receive Date: 20241216
  Receipt Date: 20241216
  Transmission Date: 20250114
  Serious: Yes (Life-Threatening, Hospitalization, Other)
  Sender: CHEPLAPHARM
  Company Number: None

PATIENT
  Age: 54 Year
  Sex: Female

DRUGS (5)
  1. CAPECITABINE [Suspect]
     Active Substance: CAPECITABINE
     Indication: Intraductal proliferative breast lesion
     Dosage: 825 MG/M2 TWICE DAILY ON DAYS 1-14 OF EACH CYCLE, EVERY 3 WEEKS?DAILY DOSE: 1650 MILLIGRAM/M?
  2. CAPECITABINE [Suspect]
     Active Substance: CAPECITABINE
     Indication: Intraductal proliferative breast lesion
     Dosage: REDUCED BY 75% IN CYCLE 3
  3. CAPECITABINE [Suspect]
     Active Substance: CAPECITABINE
     Indication: Intraductal proliferative breast lesion
     Dosage: CYCLE 2?DAILY DOSE: 1650 MILLIGRAM/M?
  4. DOCETAXEL [Suspect]
     Active Substance: DOCETAXEL
     Indication: Intraductal proliferative breast lesion
     Dosage: 75 MG/M2 ON DAY 1 OF EACH CYCLE, EVERY 3 WEEKS; 6 CYCLES
  5. DOCETAXEL [Suspect]
     Active Substance: DOCETAXEL
     Indication: Intraductal proliferative breast lesion
     Dosage: 75 MG/M2 DAILY; ON DAY 1 OF EACH CYCLE, EVERY 3 WEEKS; CYCLE 2?DAILY DOSE: 75 MILLIGRAM

REACTIONS (8)
  - Neutropenia [Recovered/Resolved]
  - Toxicity to various agents [Unknown]
  - Leukopenia [Unknown]
  - Palmar-plantar erythrodysaesthesia syndrome [Recovered/Resolved]
  - Palmar-plantar erythrodysaesthesia syndrome [Recovered/Resolved]
  - Febrile neutropenia [Unknown]
  - Diarrhoea [Unknown]
  - Mastitis [Unknown]
